FAERS Safety Report 23242475 (Version 1)
Quarter: 2023Q4

REPORT INFORMATION
  Report Type: Spontaneous
  Country: US (occurrence: US)
  Receive Date: 20231129
  Receipt Date: 20231129
  Transmission Date: 20240110
  Serious: Yes (Other)
  Sender: FDA-Public Use
  Company Number: US-PFM-2023-06821

PATIENT
  Sex: Female
  Weight: 10.698 kg

DRUGS (1)
  1. HEMANGEOL [Suspect]
     Active Substance: PROPRANOLOL HYDROCHLORIDE
     Indication: Haemangioma
     Dosage: 4.3 ML, BID (2/DAY)
     Route: 048

REACTIONS (1)
  - Ulcerated haemangioma [Unknown]
